FAERS Safety Report 14634609 (Version 1)
Quarter: 2018Q1

REPORT INFORMATION
  Report Type: Spontaneous
  Country: US (occurrence: US)
  Receive Date: 20180314
  Receipt Date: 20180314
  Transmission Date: 20180509
  Serious: No
  Sender: FDA-Public Use
  Company Number: US-PFIZER INC-2018098909

PATIENT
  Age: 54 Year
  Sex: Female
  Weight: 64.3 kg

DRUGS (1)
  1. SULFASALAZINE. [Suspect]
     Active Substance: SULFASALAZINE
     Dosage: UNK
     Dates: start: 201007, end: 201608

REACTIONS (2)
  - Influenza like illness [Unknown]
  - Disease progression [Unknown]
